FAERS Safety Report 7880226-5 (Version None)
Quarter: 2011Q4

REPORT INFORMATION
  Report Type: 
  Country: None (occurrence: None)
  Receive Date: 20111101
  Receipt Date: 20111026
  Transmission Date: 20120403
  Serious: Yes (Other)
  Sender: FDA-Public Use
  Company Number: BR-PFIZER INC-2011228736

PATIENT
  Sex: Female

DRUGS (3)
  1. ANAFRANIL [Concomitant]
     Dosage: 25 MG, UNK
  2. ALPRAZOLAM [Suspect]
     Dosage: ONE TABLET 25 (AT NIGHT)
     Route: 048
     Dates: start: 20050101
  3. DAFORIN [Concomitant]
     Dosage: 20 MG, UNK

REACTIONS (2)
  - VITAMIN B12 DEFICIENCY [None]
  - PERIPHERAL SENSORY NEUROPATHY [None]
